FAERS Safety Report 19256859 (Version 1)
Quarter: 2021Q2

REPORT INFORMATION
  Report Type: Other
  Country: NL (occurrence: NL)
  Receive Date: 20210513
  Receipt Date: 20210513
  Transmission Date: 20210717
  Serious: Yes (Hospitalization, Other)
  Sender: FDA-Public Use
  Company Number: NL-NAVINTA LLC-000154

PATIENT
  Age: 5 Year

DRUGS (3)
  1. ROPIVACAINE. [Suspect]
     Active Substance: ROPIVACAINE HYDROCHLORIDE
     Indication: PRODUCT USED FOR UNKNOWN INDICATION
  2. XENETIX 300 [Suspect]
     Active Substance: IOBITRIDOL
     Indication: ANEURYSMAL BONE CYST
  3. POLIDOCANOL. [Suspect]
     Active Substance: POLIDOCANOL
     Indication: ANEURYSMAL BONE CYST

REACTIONS (3)
  - Anaphylactic reaction [Recovered/Resolved]
  - Cardiac arrest [Recovered/Resolved]
  - Hypovolaemic shock [Recovered/Resolved]
